FAERS Safety Report 6530853-2 (Version None)
Quarter: 2010Q1

REPORT INFORMATION
  Report Type: 
  Country: None (occurrence: None)
  Receive Date: 20100108
  Receipt Date: 20090504
  Transmission Date: 20100710
  Serious: No
  Sender: FDA-Public Use
  Company Number: A0778100A

PATIENT
  Age: 64 Year
  Sex: Female

DRUGS (5)
  1. LOVAZA [Suspect]
     Dosage: 2G TWICE PER DAY
     Route: 048
     Dates: start: 20081001
  2. WELCHOL [Suspect]
     Dosage: 1875MG TWICE PER DAY
     Route: 048
     Dates: start: 20090320, end: 20090404
  3. SYNTHROID [Concomitant]
  4. ACIPHEX [Concomitant]
  5. ISOSORBIDE MONONITRATE [Concomitant]

REACTIONS (3)
  - BLOOD CHOLESTEROL INCREASED [None]
  - DISTURBANCE IN ATTENTION [None]
  - INSOMNIA [None]
